FAERS Safety Report 21709700 (Version 1)
Quarter: 2022Q4

REPORT INFORMATION
  Report Type: Spontaneous
  Country: NO (occurrence: NO)
  Receive Date: 20221210
  Receipt Date: 20221210
  Transmission Date: 20230113
  Serious: Yes (Hospitalization)
  Sender: FDA-Public Use
  Company Number: None

PATIENT
  Age: 48 Year
  Sex: Male
  Weight: 97 kg

DRUGS (2)
  1. AMLODIPINE\VALSARTAN [Suspect]
     Active Substance: AMLODIPINE\VALSARTAN
     Indication: Hypertension
     Dosage: FOR ACTIVE INGREDIENT VALSARTAN THE STRENGTH IS 80 MILLIGRAM .FOR ACTIVE INGREDIENT AMLODIPINE THE S
     Dates: start: 20220930
  2. WHEY [Concomitant]
     Active Substance: WHEY
     Indication: Product used for unknown indication

REACTIONS (5)
  - Dizziness [Not Recovered/Not Resolved]
  - Vomiting [Unknown]
  - Libido decreased [Not Recovered/Not Resolved]
  - General physical health deterioration [Not Recovered/Not Resolved]
  - Nausea [Not Recovered/Not Resolved]

NARRATIVE: CASE EVENT DATE: 20221001
